FAERS Safety Report 20414701 (Version 2)
Quarter: 2022Q1

REPORT INFORMATION
  Report Type: Report from Study
  Country: KW (occurrence: KW)
  Receive Date: 20220202
  Receipt Date: 20220210
  Transmission Date: 20220423
  Serious: Yes (Hospitalization)
  Sender: FDA-Public Use
  Company Number: KW-ABBVIE-22K-091-4260206-00

PATIENT
  Age: 63 Year
  Sex: Female

DRUGS (5)
  1. CARBIDOPA\LEVODOPA [Suspect]
     Active Substance: CARBIDOPA\LEVODOPA
     Indication: Parkinson^s disease
     Dosage: MORNING DOSE 9ML, CONTINUOUS RATE 4ML/HR, EXTRA DOSE 1.5ML?DUODOPA ABV ROW PEG 20F SPLIT
     Route: 050
     Dates: start: 20201129, end: 20220130
  2. CARBIDOPA\LEVODOPA [Suspect]
     Active Substance: CARBIDOPA\LEVODOPA
  3. BISOPROLOL FUMARATE [Concomitant]
     Active Substance: BISOPROLOL FUMARATE
     Indication: Product used for unknown indication
     Route: 048
  4. DIOVAN [Concomitant]
     Active Substance: VALSARTAN
     Indication: Product used for unknown indication
     Route: 048
  5. LEVACIN [Concomitant]
     Indication: Product used for unknown indication
     Dosage: ONE TABLET AT NIGHT
     Route: 048

REACTIONS (3)
  - Abdominal pain [Unknown]
  - Ascites [Recovering/Resolving]
  - Peptic ulcer perforation [Recovering/Resolving]

NARRATIVE: CASE EVENT DATE: 20220130
